FAERS Safety Report 6699782-8 (Version None)
Quarter: 2010Q2

REPORT INFORMATION
  Report Type: 
  Country: None (occurrence: None)
  Receive Date: 20100428
  Receipt Date: 20100423
  Transmission Date: 20101027
  Serious: Yes (Death, Other)
  Sender: FDA-Public Use
  Company Number: JP-JNJFOC-20100402213

PATIENT
  Sex: Female
  Weight: 48 kg

DRUGS (15)
  1. ITRIZOLE [Suspect]
     Indication: FEBRILE NEUTROPENIA
     Route: 041
  2. ITRIZOLE [Suspect]
     Route: 041
  3. ITRIZOLE [Suspect]
     Indication: OESOPHAGEAL CANDIDIASIS
     Route: 048
  4. MAXIPIME [Suspect]
     Indication: SEPSIS
     Route: 042
  5. MAXIPIME [Suspect]
     Indication: FEBRILE NEUTROPENIA
     Route: 042
  6. GLEEVEC [Suspect]
     Indication: ACUTE LYMPHOCYTIC LEUKAEMIA
     Route: 048
  7. AMIKACIN SULFATE [Concomitant]
     Indication: SEPSIS
     Route: 042
  8. GRAN [Concomitant]
     Indication: FEBRILE NEUTROPENIA
     Route: 058
  9. EXACIN [Concomitant]
     Indication: SEPSIS
     Route: 042
  10. DORIPENEM MONOHYDRATE [Concomitant]
     Indication: SEPSIS
     Route: 042
  11. FAMOTIDINE [Concomitant]
     Indication: GASTRIC ULCER
     Route: 048
  12. RIZE [Concomitant]
     Indication: INSOMNIA
     Route: 048
  13. SELBEX [Concomitant]
     Indication: GASTRIC ULCER
     Route: 048
  14. LENDORMIN [Concomitant]
     Indication: INSOMNIA
     Route: 048
  15. DORIPENEM MONOHYDRATE [Concomitant]
     Route: 042

REACTIONS (9)
  - ALANINE AMINOTRANSFERASE INCREASED [None]
  - BLOOD ALKALINE PHOSPHATASE INCREASED [None]
  - DIARRHOEA [None]
  - HEPATIC FUNCTION ABNORMAL [None]
  - HYPOKALAEMIA [None]
  - LEUKAEMIA RECURRENT [None]
  - NEUTROPHIL COUNT DECREASED [None]
  - SEPTIC SHOCK [None]
  - WHITE BLOOD CELL COUNT DECREASED [None]
